FAERS Safety Report 23978071 (Version 2)
Quarter: 2024Q3

REPORT INFORMATION
  Report Type: Report from Study
  Country: US (occurrence: None)
  Receive Date: 20240614
  Receipt Date: 20240708
  Transmission Date: 20241017
  Serious: Yes (Life-Threatening, Other)
  Sender: ASTRAZENECA
  Company Number: 2024A135587

PATIENT
  Age: 66 Year
  Sex: Male
  Weight: 88.9 kg

DRUGS (1)
  1. BREZTRI [Suspect]
     Active Substance: BUDESONIDE\FORMOTEROL\GLYCOPYRROLATE
     Indication: Chronic obstructive pulmonary disease
     Dosage: 2 PUFFS2UG/INHAL TWO TIMES A DAY
     Route: 055
     Dates: start: 20240329, end: 20240528

REACTIONS (3)
  - Anaphylactic shock [Unknown]
  - Drug hypersensitivity [Unknown]
  - Swelling face [Recovered/Resolved]

NARRATIVE: CASE EVENT DATE: 20240528
